FAERS Safety Report 15602011 (Version 2)
Quarter: 2018Q4

REPORT INFORMATION
  Report Type: Report from Study
  Country: US (occurrence: US)
  Receive Date: 20181109
  Receipt Date: 20181111
  Transmission Date: 20190205
  Serious: Yes (Life-Threatening, Hospitalization, Other)
  Sender: FDA-Public Use
  Company Number: US-009507513-1805USA007467

PATIENT
  Age: 69 Year
  Sex: Male
  Weight: 128.4 kg

DRUGS (11)
  1. IBUPROFEN. [Concomitant]
     Active Substance: IBUPROFEN
     Indication: BACK PAIN
     Dosage: 200 MILLIGRAM, PRN; FORMULATION: PILL
     Route: 048
     Dates: start: 20180409
  2. MK-1308 [Suspect]
     Active Substance: INVESTIGATIONAL PRODUCT
     Indication: NON-SMALL CELL LUNG CANCER
     Dosage: 25/75 MILIGRAM, Q3W OR Q6W
     Route: 042
     Dates: start: 20180501, end: 20180501
  3. ATORVASTATIN [Concomitant]
     Active Substance: ATORVASTATIN
     Indication: CORONARY ARTERY DISEASE
     Dosage: 20 MILLIGRAM, QD. FORMULATION: PILL
     Route: 048
     Dates: start: 201711
  4. APIXABAN [Concomitant]
     Active Substance: APIXABAN
     Indication: ATRIAL FIBRILLATION
     Dosage: 5 MILLIGRAM, BID, FORMULATION: PILL
     Route: 048
     Dates: start: 201711
  5. ALBUTEROL SULFATE. [Concomitant]
     Active Substance: ALBUTEROL SULFATE
     Indication: CHRONIC OBSTRUCTIVE PULMONARY DISEASE
     Dosage: 2 PUFF, PRN; FORMULATION: INHALANT, ROUTE OF ADMINISTRATION:RESPIRATORY(INHALATION
     Route: 055
     Dates: start: 201701
  6. ACETAMINOPHEN (+) HYDROCODONE BITARTRATE [Concomitant]
     Active Substance: ACETAMINOPHEN\HYDROCODONE BITARTRATE
     Indication: BACK PAIN
     Dosage: 325 MILLIGRAM, PRN. FORMULATION: PILL
     Route: 048
     Dates: start: 20180406, end: 20180508
  7. LIDOCAINE (+) PRILOCAINE [Concomitant]
     Indication: CATHETER SITE PAIN
     Dosage: 1 APPLICATION, PRN
     Route: 061
     Dates: start: 20180424
  8. PEMBROLIZUMAB. [Suspect]
     Active Substance: PEMBROLIZUMAB
     Indication: NON-SMALL CELL LUNG CANCER
     Dosage: 200 MILLIGRAM, Q3W
     Route: 042
     Dates: start: 20180501, end: 20180501
  9. LOSARTIN [Concomitant]
     Active Substance: LOSARTAN
     Indication: LEFT VENTRICULAR FAILURE
     Dosage: 25 MILLIGRAM, QD; FORMULATION: PILL
     Route: 048
     Dates: start: 201710
  10. FUROSEMIDE. [Concomitant]
     Active Substance: FUROSEMIDE
     Indication: LEFT VENTRICULAR FAILURE
     Dosage: 40 MILLIGRAM, BID; FORMULATION: PILL
     Route: 048
     Dates: start: 201711
  11. POTASSIUM CHLORIDE. [Concomitant]
     Active Substance: POTASSIUM CHLORIDE
     Indication: ELECTROLYTE SUBSTITUTION THERAPY
     Dosage: 10 MILLIEQUIVALENT, BID. FORMULATION: PILL
     Route: 048
     Dates: start: 201711

REACTIONS (3)
  - Transaminases increased [Recovered/Resolved]
  - Bacteraemia [Recovered/Resolved]
  - Tachyarrhythmia [Recovered/Resolved]

NARRATIVE: CASE EVENT DATE: 20180508
